FAERS Safety Report 9996302 (Version 1)
Quarter: 2014Q1

REPORT INFORMATION
  Report Type: Spontaneous
  Country: US (occurrence: None)
  Receive Date: 20140310
  Receipt Date: 20140310
  Transmission Date: 20141002
  Serious: Yes (Life-Threatening, Hospitalization)
  Sender: FDA-Public Use
  Company Number: None

PATIENT
  Age: 67 Year
  Sex: Male
  Weight: 99 kg

DRUGS (2)
  1. ROPIVACAINE [Suspect]
     Indication: SURGERY
     Route: 042
     Dates: start: 20131018, end: 20131018
  2. MEPIVACAINE [Suspect]
     Indication: SURGERY
     Route: 042
     Dates: start: 20131018

REACTIONS (2)
  - Convulsion [None]
  - Unresponsive to stimuli [None]
